FAERS Safety Report 5722476-X (Version None)
Quarter: 2008Q2

REPORT INFORMATION
  Report Type: 
  Country: None (occurrence: None)
  Receive Date: 20080425
  Receipt Date: 20080417
  Transmission Date: 20081010
  Serious: No
  Sender: FDA-Public Use
  Company Number: 20085049

PATIENT
  Sex: Male

DRUGS (8)
  1. LIORESAL [Suspect]
     Indication: MUSCLE SPASTICITY
     Dosage: MCG, DAILY, INTRATHECAL
     Route: 037
  2. LAMICTAL [Concomitant]
  3. KEPPRA [Concomitant]
  4. SEROQUEL [Concomitant]
  5. KLONODINE [Concomitant]
  6. CLORAZEPATE [Concomitant]
  7. TRAZAZONE [Concomitant]
  8. PERIACTIN [Concomitant]

REACTIONS (7)
  - AGITATION [None]
  - BLOOD PRESSURE INCREASED [None]
  - BODY TEMPERATURE INCREASED [None]
  - DEVICE FAILURE [None]
  - MUSCLE RIGIDITY [None]
  - TONGUE DISORDER [None]
  - UNDERDOSE [None]
